FAERS Safety Report 10070231 (Version 3)
Quarter: 2014Q2

REPORT INFORMATION
  Report Type: Report from Study
  Country: US (occurrence: US)
  Receive Date: 20140410
  Receipt Date: 20140428
  Transmission Date: 20141212
  Serious: Yes (Other)
  Sender: FDA-Public Use
  Company Number: PHEH2014US006194

PATIENT
  Sex: Female

DRUGS (1)
  1. TEKTURNA [Suspect]
     Dosage: 150 MG, UNK
     Route: 048

REACTIONS (4)
  - Oxygen saturation decreased [Unknown]
  - Gait disturbance [Unknown]
  - Heart rate increased [Unknown]
  - Hypertension [Unknown]
